FAERS Safety Report 13952419 (Version 1)
Quarter: 2017Q3

REPORT INFORMATION
  Report Type: Spontaneous
  Country: US (occurrence: US)
  Receive Date: 20170911
  Receipt Date: 20170911
  Transmission Date: 20171128
  Serious: No
  Sender: FDA-Public Use
  Company Number: US-TEVA-727423ACC

PATIENT
  Sex: Male
  Weight: 59 kg

DRUGS (1)
  1. FENTANYL. [Suspect]
     Active Substance: FENTANYL
     Indication: PRODUCT USED FOR UNKNOWN INDICATION
     Dosage: DOSE STRENGTH:  100MCG 5
     Route: 065

REACTIONS (3)
  - Wrong technique in product usage process [Unknown]
  - Pain [Unknown]
  - Drug ineffective [Unknown]
